FAERS Safety Report 7880308-8 (Version None)
Quarter: 2011Q4

REPORT INFORMATION
  Report Type: 
  Country: None (occurrence: None)
  Receive Date: 20111101
  Receipt Date: 20111026
  Transmission Date: 20120403
  Serious: Yes (Death, Other)
  Sender: FDA-Public Use
  Company Number: JP-PFIZER INC-2011262317

PATIENT
  Age: 65 Year
  Sex: Female

DRUGS (1)
  1. ZOSYN [Suspect]
     Indication: PYELONEPHRITIS
     Dosage: UNK
     Route: 041

REACTIONS (2)
  - CLOSTRIDIAL INFECTION [None]
  - SHOCK [None]
